FAERS Safety Report 24771476 (Version 1)
Quarter: 2024Q4

REPORT INFORMATION
  Report Type: Spontaneous
  Country: CA (occurrence: CA)
  Receive Date: 20241224
  Receipt Date: 20241224
  Transmission Date: 20250114
  Serious: Yes (Other)
  Sender: DR REDDYS
  Company Number: None

PATIENT
  Age: 48 Year
  Sex: Female

DRUGS (6)
  1. ZOLEDRONIC ACID [Suspect]
     Active Substance: ZOLEDRONIC ACID
     Indication: Metastases to bone
     Route: 042
  2. ZOLEDRONIC ACID [Suspect]
     Active Substance: ZOLEDRONIC ACID
     Indication: Invasive lobular breast carcinoma
  3. PALBOCICLIB ISETHIONATE [Concomitant]
     Active Substance: PALBOCICLIB ISETHIONATE
     Indication: Metastases to bone
     Route: 065
  4. PALBOCICLIB ISETHIONATE [Concomitant]
     Active Substance: PALBOCICLIB ISETHIONATE
     Indication: Invasive lobular breast carcinoma
  5. GOSERELIN [Concomitant]
     Active Substance: GOSERELIN
     Indication: Metastases to bone
  6. GOSERELIN [Concomitant]
     Active Substance: GOSERELIN
     Indication: Invasive lobular breast carcinoma
     Route: 058

REACTIONS (2)
  - Periorbital inflammation [Recovered/Resolved]
  - Uveitis [Recovered/Resolved]
